FAERS Safety Report 4572614-X (Version None)
Quarter: 2005Q1

REPORT INFORMATION
  Report Type: 
  Country: None (occurrence: None)
  Receive Date: 20050208
  Receipt Date: 20040831
  Transmission Date: 20050727
  Serious: No
  Sender: FDA-Public Use
  Company Number: 2004-03542

PATIENT
  Age: 73 Year
  Sex: Male
  Weight: 70 kg

DRUGS (6)
  1. PAXIL [Suspect]
     Indication: ANXIETY
     Dosage: .25TSP PER DAY
     Route: 048
  2. LORAZEPAM [Suspect]
     Indication: ANXIETY
     Route: 048
     Dates: start: 20020101, end: 20040801
  3. TRAZODONE [Suspect]
     Indication: SLEEP DISORDER
     Route: 048
     Dates: start: 20040801
  4. HYDROCHLOROTHIAZIDE [Concomitant]
     Indication: HYPERTENSION
     Route: 048
     Dates: start: 19760101
  5. CORGARD [Concomitant]
  6. RHINOCORT [Concomitant]

REACTIONS (3)
  - ANXIETY [None]
  - NERVOUSNESS [None]
  - TENSION [None]
